FAERS Safety Report 14365607 (Version 3)
Quarter: 2018Q3

REPORT INFORMATION
  Report Type: Report from Study
  Country: CN (occurrence: CN)
  Receive Date: 20180109
  Receipt Date: 20180716
  Transmission Date: 20181010
  Serious: Yes (Hospitalization)
  Sender: FDA-Public Use
  Company Number: CN-ROCHE-2049035

PATIENT
  Age: 65 Year
  Sex: Female
  Weight: 60 kg

DRUGS (106)
  1. DIPHENHYDRAMINE. [Concomitant]
     Active Substance: DIPHENHYDRAMINE
     Route: 065
     Dates: start: 20161102, end: 20161102
  2. GLUTATHIONE [Concomitant]
     Active Substance: GLUTATHIONE
     Route: 065
     Dates: start: 20161011, end: 20161012
  3. GLUTATHIONE [Concomitant]
     Active Substance: GLUTATHIONE
     Route: 065
     Dates: start: 20170330, end: 20170330
  4. LEVOCARNITINE. [Concomitant]
     Active Substance: LEVOCARNITINE
     Route: 065
     Dates: start: 20170602, end: 20170602
  5. LEVOCARNITINE. [Concomitant]
     Active Substance: LEVOCARNITINE
     Route: 065
     Dates: start: 20170714, end: 20170714
  6. TROPISETRON [Concomitant]
     Active Substance: TROPISETRON
     Indication: INFUSION RELATED REACTION
     Route: 065
     Dates: start: 20160920, end: 20160920
  7. TROPISETRON [Concomitant]
     Active Substance: TROPISETRON
     Route: 065
     Dates: start: 20161011, end: 20161011
  8. GLUCOSE [Concomitant]
     Active Substance: DEXTROSE
     Indication: FLUID REPLACEMENT
     Route: 065
     Dates: start: 20171026, end: 20171027
  9. DEXAMETHASONE. [Concomitant]
     Active Substance: DEXAMETHASONE
     Route: 065
     Dates: start: 20170103, end: 20170105
  10. DIPHENHYDRAMINE. [Concomitant]
     Active Substance: DIPHENHYDRAMINE
     Indication: INFUSION RELATED REACTION
     Route: 065
     Dates: start: 20160920, end: 20160920
  11. DIPHENHYDRAMINE. [Concomitant]
     Active Substance: DIPHENHYDRAMINE
     Route: 065
     Dates: start: 20161214, end: 20161214
  12. DIPHENHYDRAMINE. [Concomitant]
     Active Substance: DIPHENHYDRAMINE
     Route: 065
     Dates: start: 20170215, end: 20170215
  13. DIPHENHYDRAMINE. [Concomitant]
     Active Substance: DIPHENHYDRAMINE
     Route: 065
     Dates: start: 20170421, end: 20170421
  14. DIPHENHYDRAMINE. [Concomitant]
     Active Substance: DIPHENHYDRAMINE
     Route: 065
     Dates: start: 20170714, end: 20170714
  15. DIPHENHYDRAMINE. [Concomitant]
     Active Substance: DIPHENHYDRAMINE
     Route: 065
     Dates: start: 20170823, end: 20170823
  16. DIPHENHYDRAMINE. [Concomitant]
     Active Substance: DIPHENHYDRAMINE
     Route: 065
     Dates: start: 20171020, end: 20171020
  17. GLUTATHIONE [Concomitant]
     Active Substance: GLUTATHIONE
     Indication: INFUSION RELATED REACTION
     Route: 065
     Dates: start: 20160920, end: 20160921
  18. GLUTATHIONE [Concomitant]
     Active Substance: GLUTATHIONE
     Route: 065
     Dates: start: 20161123, end: 20161124
  19. GLUTATHIONE [Concomitant]
     Active Substance: GLUTATHIONE
     Route: 065
     Dates: start: 20161102, end: 20161103
  20. GLUTATHIONE [Concomitant]
     Active Substance: GLUTATHIONE
     Route: 065
     Dates: start: 20170512, end: 20170512
  21. OMEPRAZOLE. [Concomitant]
     Active Substance: OMEPRAZOLE
     Route: 065
     Dates: start: 20170123, end: 20170124
  22. OMEPRAZOLE. [Concomitant]
     Active Substance: OMEPRAZOLE
     Route: 065
     Dates: start: 20170930, end: 20170930
  23. DEXAMETHASONE. [Concomitant]
     Active Substance: DEXAMETHASONE
     Route: 065
     Dates: start: 20170122, end: 20170124
  24. DIPHENHYDRAMINE. [Concomitant]
     Active Substance: DIPHENHYDRAMINE
     Route: 065
     Dates: start: 20170123, end: 20170123
  25. DIPHENHYDRAMINE. [Concomitant]
     Active Substance: DIPHENHYDRAMINE
     Route: 065
     Dates: start: 20170930, end: 20170930
  26. GLUTATHIONE [Concomitant]
     Active Substance: GLUTATHIONE
     Route: 065
     Dates: start: 20170421, end: 20170421
  27. TROPISETRON [Concomitant]
     Active Substance: TROPISETRON
     Route: 065
     Dates: start: 20170104, end: 20170104
  28. OMEPRAZOLE. [Concomitant]
     Active Substance: OMEPRAZOLE
     Route: 065
     Dates: start: 20170330, end: 20170330
  29. OMEPRAZOLE. [Concomitant]
     Active Substance: OMEPRAZOLE
     Route: 065
     Dates: start: 20170512, end: 20170512
  30. TRASTUZUMAB. [Suspect]
     Active Substance: TRASTUZUMAB
     Indication: HER-2 POSITIVE BREAST CANCER
     Dosage: LOADING DOSE
     Route: 042
     Dates: start: 20160920
  31. ZOLEDRONIC ACID [Concomitant]
     Active Substance: ZOLEDRONIC ACID
     Indication: OSTEOPOROSIS
     Route: 065
     Dates: start: 20160918, end: 20160918
  32. DEXAMETHASONE. [Concomitant]
     Active Substance: DEXAMETHASONE
     Route: 065
     Dates: start: 20161101, end: 20161103
  33. DIPHENHYDRAMINE. [Concomitant]
     Active Substance: DIPHENHYDRAMINE
     Route: 065
     Dates: start: 20161011, end: 20161011
  34. DIPHENHYDRAMINE. [Concomitant]
     Active Substance: DIPHENHYDRAMINE
     Route: 065
     Dates: start: 20170804, end: 20170804
  35. GLUTATHIONE [Concomitant]
     Active Substance: GLUTATHIONE
     Route: 065
     Dates: start: 20170215, end: 20170216
  36. LEVOCARNITINE. [Concomitant]
     Active Substance: LEVOCARNITINE
     Indication: INFUSION RELATED REACTION
     Route: 065
     Dates: start: 20160920, end: 20160921
  37. LEVOCARNITINE. [Concomitant]
     Active Substance: LEVOCARNITINE
     Route: 065
     Dates: start: 20170421, end: 20170421
  38. LEVOCARNITINE. [Concomitant]
     Active Substance: LEVOCARNITINE
     Route: 065
     Dates: start: 20170512, end: 20170512
  39. TROPISETRON [Concomitant]
     Active Substance: TROPISETRON
     Route: 065
     Dates: start: 20170215, end: 20170215
  40. OMEPRAZOLE. [Concomitant]
     Active Substance: OMEPRAZOLE
     Indication: INFUSION RELATED REACTION
     Route: 065
     Dates: start: 20161214, end: 20161215
  41. OMEPRAZOLE. [Concomitant]
     Active Substance: OMEPRAZOLE
     Route: 065
     Dates: start: 20161010, end: 20161012
  42. OMEPRAZOLE. [Concomitant]
     Active Substance: OMEPRAZOLE
     Route: 065
     Dates: start: 20170215, end: 20170216
  43. OMEPRAZOLE. [Concomitant]
     Active Substance: OMEPRAZOLE
     Route: 065
     Dates: start: 20170310, end: 20170310
  44. OMEPRAZOLE. [Concomitant]
     Active Substance: OMEPRAZOLE
     Route: 065
     Dates: start: 20170804, end: 20170804
  45. COMPOUND DIISOPROPYLAMINE DICHLOROACETATE [Concomitant]
     Active Substance: DIISOPROPYLAMMONIUM DICHLOROACETATE
     Indication: INFUSION RELATED REACTION
     Route: 065
     Dates: start: 20171020, end: 20171020
  46. DOCETAXEL. [Suspect]
     Active Substance: DOCETAXEL
     Indication: HER-2 POSITIVE BREAST CANCER
     Dosage: MOST RECENT DOSE OF 120 MG ADMINISTERED PRIOR TO SAE ONSET ON 15/FEB/2017
     Route: 042
     Dates: start: 20160920
  47. DEXAMETHASONE. [Concomitant]
     Active Substance: DEXAMETHASONE
     Route: 065
     Dates: start: 20161213, end: 20161215
  48. DEXAMETHASONE. [Concomitant]
     Active Substance: DEXAMETHASONE
     Route: 065
     Dates: start: 20161010, end: 20161012
  49. GLUTATHIONE [Concomitant]
     Active Substance: GLUTATHIONE
     Route: 065
     Dates: start: 20161214, end: 20161215
  50. GLUTATHIONE [Concomitant]
     Active Substance: GLUTATHIONE
     Route: 065
     Dates: start: 20170930, end: 20170930
  51. LEVOCARNITINE. [Concomitant]
     Active Substance: LEVOCARNITINE
     Route: 065
     Dates: start: 20161123, end: 20161124
  52. LEVOCARNITINE. [Concomitant]
     Active Substance: LEVOCARNITINE
     Route: 065
     Dates: start: 20161214, end: 20161214
  53. LEVOCARNITINE. [Concomitant]
     Active Substance: LEVOCARNITINE
     Route: 065
     Dates: start: 20161011, end: 20161012
  54. LEVOCARNITINE. [Concomitant]
     Active Substance: LEVOCARNITINE
     Route: 065
     Dates: start: 20170123, end: 20170124
  55. LEVOCARNITINE. [Concomitant]
     Active Substance: LEVOCARNITINE
     Route: 065
     Dates: start: 20170623, end: 20170623
  56. LEVOCARNITINE. [Concomitant]
     Active Substance: LEVOCARNITINE
     Route: 065
     Dates: start: 20171020, end: 20171020
  57. TROPISETRON [Concomitant]
     Active Substance: TROPISETRON
     Route: 065
     Dates: start: 20161214, end: 20161214
  58. OMEPRAZOLE. [Concomitant]
     Active Substance: OMEPRAZOLE
     Route: 065
     Dates: start: 20170912, end: 20170912
  59. OMEPRAZOLE. [Concomitant]
     Active Substance: OMEPRAZOLE
     Route: 065
     Dates: start: 20171020, end: 20171020
  60. METRONIDAZOLE. [Concomitant]
     Active Substance: METRONIDAZOLE
     Indication: PELVIC PROLAPSE
     Route: 065
     Dates: start: 20171026, end: 20171028
  61. FRUCTOSE [Concomitant]
     Active Substance: FRUCTOSE
     Indication: FLUID REPLACEMENT
     Route: 065
     Dates: start: 20171026, end: 20171027
  62. COMPOUND SODIUM CHLORIDE [Concomitant]
     Indication: FLUID REPLACEMENT
     Route: 065
     Dates: start: 20171026, end: 20171027
  63. PERTUZUMAB. [Suspect]
     Active Substance: PERTUZUMAB
     Indication: HER-2 POSITIVE BREAST CANCER
     Dosage: LOADING DOSE
     Route: 042
     Dates: start: 20160920
  64. DEXAMETHASONE. [Concomitant]
     Active Substance: DEXAMETHASONE
     Indication: INFUSION RELATED REACTION
     Route: 065
     Dates: start: 20160919, end: 20160921
  65. GLUTATHIONE [Concomitant]
     Active Substance: GLUTATHIONE
     Route: 065
     Dates: start: 20170310, end: 20170310
  66. GLUTATHIONE [Concomitant]
     Active Substance: GLUTATHIONE
     Route: 065
     Dates: start: 20170714, end: 20170714
  67. GLUTATHIONE [Concomitant]
     Active Substance: GLUTATHIONE
     Route: 065
     Dates: start: 20170804, end: 20170804
  68. GLUTATHIONE [Concomitant]
     Active Substance: GLUTATHIONE
     Route: 065
     Dates: start: 20170912, end: 20170912
  69. LEVOCARNITINE. [Concomitant]
     Active Substance: LEVOCARNITINE
     Route: 065
     Dates: start: 20170215, end: 20170216
  70. LEVOCARNITINE. [Concomitant]
     Active Substance: LEVOCARNITINE
     Route: 065
     Dates: start: 20170330, end: 20170330
  71. LEVOCARNITINE. [Concomitant]
     Active Substance: LEVOCARNITINE
     Route: 065
     Dates: start: 20170930, end: 20170930
  72. TROPISETRON [Concomitant]
     Active Substance: TROPISETRON
     Route: 065
     Dates: start: 20161123, end: 20161123
  73. OMEPRAZOLE. [Concomitant]
     Active Substance: OMEPRAZOLE
     Route: 065
     Dates: start: 20170823, end: 20170823
  74. SODIUM CHLORIDE. [Concomitant]
     Active Substance: SODIUM CHLORIDE
     Indication: FLUID REPLACEMENT
     Route: 065
     Dates: start: 20171026, end: 20171027
  75. TRASTUZUMAB. [Suspect]
     Active Substance: TRASTUZUMAB
     Dosage: MAITENANCE DOSE?DATE OF MOST RECENT DOSE OF TRASTUZUMAB PRIOR TO SAE ONSET 20/OCT/2017: 360 MG
     Route: 042
  76. DEXAMETHASONE. [Concomitant]
     Active Substance: DEXAMETHASONE
     Route: 065
     Dates: start: 20170214, end: 20170216
  77. DIPHENHYDRAMINE. [Concomitant]
     Active Substance: DIPHENHYDRAMINE
     Route: 065
     Dates: start: 20170310, end: 20170310
  78. DIPHENHYDRAMINE. [Concomitant]
     Active Substance: DIPHENHYDRAMINE
     Route: 065
     Dates: start: 20170512, end: 20170512
  79. DIPHENHYDRAMINE. [Concomitant]
     Active Substance: DIPHENHYDRAMINE
     Route: 065
     Dates: start: 20170623, end: 20170623
  80. DIPHENHYDRAMINE. [Concomitant]
     Active Substance: DIPHENHYDRAMINE
     Route: 065
     Dates: start: 20170912, end: 20170912
  81. LANSOPRAZOLE. [Concomitant]
     Active Substance: LANSOPRAZOLE
     Indication: INFUSION RELATED REACTION
     Route: 065
     Dates: start: 20160920, end: 20160921
  82. GLUTATHIONE [Concomitant]
     Active Substance: GLUTATHIONE
     Route: 065
     Dates: start: 20170123, end: 20170124
  83. GLUTATHIONE [Concomitant]
     Active Substance: GLUTATHIONE
     Route: 065
     Dates: start: 20170623, end: 20170623
  84. LEVOCARNITINE. [Concomitant]
     Active Substance: LEVOCARNITINE
     Route: 065
     Dates: start: 20170310, end: 20170310
  85. LEVOCARNITINE. [Concomitant]
     Active Substance: LEVOCARNITINE
     Route: 065
     Dates: start: 20170912, end: 20170912
  86. TROPISETRON [Concomitant]
     Active Substance: TROPISETRON
     Route: 065
     Dates: start: 20161102, end: 20161102
  87. TROPISETRON [Concomitant]
     Active Substance: TROPISETRON
     Route: 065
     Dates: start: 20170123, end: 20170123
  88. PERTUZUMAB. [Suspect]
     Active Substance: PERTUZUMAB
     Dosage: MAINTENANCE DOSE?DATE OF MOST RECENT DOSE OF BLINDED PERTUZUMAB PRIOR TO SAE ONSET 20/OCT/2017
     Route: 042
  89. DEXAMETHASONE. [Concomitant]
     Active Substance: DEXAMETHASONE
     Route: 065
     Dates: start: 20161122, end: 20161124
  90. DIPHENHYDRAMINE. [Concomitant]
     Active Substance: DIPHENHYDRAMINE
     Route: 065
     Dates: start: 20161123, end: 20161123
  91. DIPHENHYDRAMINE. [Concomitant]
     Active Substance: DIPHENHYDRAMINE
     Route: 065
     Dates: start: 20170104, end: 20170104
  92. DIPHENHYDRAMINE. [Concomitant]
     Active Substance: DIPHENHYDRAMINE
     Route: 065
     Dates: start: 20170330, end: 20170330
  93. DIPHENHYDRAMINE. [Concomitant]
     Active Substance: DIPHENHYDRAMINE
     Route: 065
     Dates: start: 20170602, end: 20170602
  94. GLUTATHIONE [Concomitant]
     Active Substance: GLUTATHIONE
     Route: 065
     Dates: start: 20170104, end: 20170105
  95. GLUTATHIONE [Concomitant]
     Active Substance: GLUTATHIONE
     Route: 065
     Dates: start: 20170602, end: 20170602
  96. GLUTATHIONE [Concomitant]
     Active Substance: GLUTATHIONE
     Route: 065
     Dates: start: 20170823, end: 20170823
  97. LEVOCARNITINE. [Concomitant]
     Active Substance: LEVOCARNITINE
     Route: 065
     Dates: start: 20161102, end: 20161103
  98. LEVOCARNITINE. [Concomitant]
     Active Substance: LEVOCARNITINE
     Route: 065
     Dates: start: 20170104, end: 20170105
  99. LEVOCARNITINE. [Concomitant]
     Active Substance: LEVOCARNITINE
     Route: 065
     Dates: start: 20170804, end: 20170804
  100. LEVOCARNITINE. [Concomitant]
     Active Substance: LEVOCARNITINE
     Route: 065
     Dates: start: 20170823, end: 20170823
  101. OMEPRAZOLE. [Concomitant]
     Active Substance: OMEPRAZOLE
     Route: 065
     Dates: start: 20161102, end: 20161103
  102. OMEPRAZOLE. [Concomitant]
     Active Substance: OMEPRAZOLE
     Route: 065
     Dates: start: 20170104, end: 20170105
  103. OMEPRAZOLE. [Concomitant]
     Active Substance: OMEPRAZOLE
     Route: 065
     Dates: start: 20170421, end: 20170421
  104. OMEPRAZOLE. [Concomitant]
     Active Substance: OMEPRAZOLE
     Route: 065
     Dates: start: 20170602, end: 20170602
  105. OMEPRAZOLE. [Concomitant]
     Active Substance: OMEPRAZOLE
     Route: 065
     Dates: start: 20170623, end: 20170623
  106. OMEPRAZOLE. [Concomitant]
     Active Substance: OMEPRAZOLE
     Route: 065
     Dates: start: 20170714, end: 20170714

REACTIONS (1)
  - Pelvic prolapse [Recovered/Resolved]

NARRATIVE: CASE EVENT DATE: 201709
